FAERS Safety Report 8504585-5 (Version None)
Quarter: 2012Q3

REPORT INFORMATION
  Report Type: 
  Country: None (occurrence: None)
  Receive Date: 20120711
  Receipt Date: 20120706
  Transmission Date: 20120928
  Serious: Yes (Hospitalization)
  Sender: FDA-Public Use
  Company Number: IT-ROCHE-1084902

PATIENT
  Sex: Female

DRUGS (7)
  1. AMITRIPTYLINE HCL [Suspect]
     Indication: INTENTIONAL OVERDOSE
     Dosage: 40MG/ML GTT
     Route: 048
     Dates: start: 20120513, end: 20120513
  2. THYMANAX [Concomitant]
     Indication: MAJOR DEPRESSION
     Route: 048
  3. VALPROATE SODIUM [Concomitant]
     Indication: BIPOLAR DISORDER
     Route: 048
  4. ATARAX [Concomitant]
     Indication: ANXIETY
     Route: 048
  5. ZAFFERIL [Concomitant]
     Route: 048
  6. PINEAL BUSTINE [Concomitant]
     Route: 048
  7. CLONAZEPAM [Suspect]
     Indication: INTENTIONAL OVERDOSE
     Route: 048
     Dates: start: 20120513, end: 20120513

REACTIONS (3)
  - DEPRESSED LEVEL OF CONSCIOUSNESS [None]
  - TOXICITY TO VARIOUS AGENTS [None]
  - SOMNOLENCE [None]
